FAERS Safety Report 25508253 (Version 1)
Quarter: 2025Q3

REPORT INFORMATION
  Report Type: Spontaneous
  Country: EU (occurrence: EU)
  Receive Date: 20250703
  Receipt Date: 20250703
  Transmission Date: 20251021
  Serious: No
  Sender: ASTELLAS
  Company Number: EU-ASTELLAS-2022US010632

PATIENT
  Age: 79 Year
  Sex: Male
  Weight: 85 kg

DRUGS (2)
  1. XTANDI [Suspect]
     Active Substance: ENZALUTAMIDE
     Indication: Prostate cancer
     Dosage: 160 MG, ONCE DAILY
     Route: 048
     Dates: start: 201905
  2. GOSERELIN [Concomitant]
     Active Substance: GOSERELIN
     Indication: Prostate cancer
     Route: 065
     Dates: start: 201703

REACTIONS (4)
  - Therapy partial responder [Unknown]
  - Prostatic specific antigen increased [Unknown]
  - Constipation [Unknown]
  - Asthenia [Unknown]

NARRATIVE: CASE EVENT DATE: 20200714
